FAERS Safety Report 7977873-9 (Version None)
Quarter: 2011Q4

REPORT INFORMATION
  Report Type: 
  Country: None (occurrence: None)
  Receive Date: 20111214
  Receipt Date: 20111202
  Transmission Date: 20120403
  Serious: No
  Sender: FDA-Public Use
  Company Number: US-AMGEN-USASP2011053521

PATIENT
  Sex: Female

DRUGS (2)
  1. ENBREL [Suspect]
     Indication: RHEUMATOID ARTHRITIS
     Dosage: 50 MG, QWK
     Dates: start: 20040101
  2. ENBREL [Suspect]
     Indication: PSORIASIS

REACTIONS (3)
  - PSORIASIS [None]
  - INJECTION SITE REACTION [None]
  - PIGMENTATION DISORDER [None]
